FAERS Safety Report 8030514-7 (Version None)
Quarter: 2012Q1

REPORT INFORMATION
  Report Type: 
  Country: None (occurrence: None)
  Receive Date: 20120105
  Receipt Date: 20111220
  Transmission Date: 20120608
  Serious: Yes (Other)
  Sender: FDA-Public Use
  Company Number: 2011-5175

PATIENT
  Age: 54 Year
  Sex: Female
  Weight: 60 kg

DRUGS (5)
  1. DYSPORT [Suspect]
     Indication: SKIN WRINKLING
     Dosage: 120 UNITS (120 UNITS, SINGLE CYCLE), 46 UNITS (46 UNITS, SINGLE CYCLE)
     Dates: start: 20110908, end: 20110908
  2. DYSPORT [Suspect]
     Indication: OFF LABEL USE
     Dosage: 120 UNITS (120 UNITS, SINGLE CYCLE), 46 UNITS (46 UNITS, SINGLE CYCLE)
     Dates: start: 20110908, end: 20110908
  3. DYSPORT [Suspect]
     Indication: SKIN WRINKLING
     Dosage: 120 UNITS (120 UNITS, SINGLE CYCLE), 46 UNITS (46 UNITS, SINGLE CYCLE)
     Dates: start: 20110901, end: 20111001
  4. DYSPORT [Suspect]
     Indication: OFF LABEL USE
     Dosage: 120 UNITS (120 UNITS, SINGLE CYCLE), 46 UNITS (46 UNITS, SINGLE CYCLE)
     Dates: start: 20110901, end: 20111001
  5. ABOBOTULINUM TOXIN A [Suspect]

REACTIONS (3)
  - MASS [None]
  - EYE SWELLING [None]
  - DRUG INEFFECTIVE [None]
